FAERS Safety Report 8063137-4 (Version None)
Quarter: 2011Q4

REPORT INFORMATION
  Report Type: 
  Country: None (occurrence: None)
  Receive Date: 20111220
  Receipt Date: 20110728
  Transmission Date: 20120403
  Serious: Yes (Hospitalization)
  Sender: FDA-Public Use
  Company Number: PHHY2011US68433

PATIENT
  Age: 46 Year
  Sex: Male
  Weight: 73 kg

DRUGS (20)
  1. MYFORTIC [Suspect]
     Indication: PROPHYLAXIS AGAINST TRANSPLANT REJECTION
     Dosage: 360 MG, BID, ORAL, 250 MG, BID, ORAL, 720 MG, BID, ORAL
     Route: 048
     Dates: start: 20080712
  2. MYFORTIC [Suspect]
     Indication: PROPHYLAXIS AGAINST TRANSPLANT REJECTION
     Dosage: 360 MG, BID, ORAL, 250 MG, BID, ORAL, 720 MG, BID, ORAL
     Route: 048
     Dates: start: 20100806
  3. CARAC (FLUOROURACIL) [Concomitant]
  4. DIAZEPAM [Concomitant]
  5. DOXYCYCLINE [Concomitant]
  6. NORVASC [Concomitant]
  7. PROGRAF [Concomitant]
  8. PROTONIX [Concomitant]
  9. SORIATANE [Concomitant]
  10. DIOVAN [Concomitant]
  11. TEMAZEPAM [Concomitant]
  12. ATENOLOL [Concomitant]
  13. ZOFRAN [Concomitant]
  14. LAMICTAL [Concomitant]
  15. PREDNISONE TAB [Concomitant]
  16. SANDIMMUNE [Concomitant]
  17. ABILIFY [Concomitant]
  18. ADDERALL 10 [Concomitant]
  19. ADDERALL XR 20 [Concomitant]
  20. CELEXA [Concomitant]

REACTIONS (1)
  - PANCREATITIS [None]
